FAERS Safety Report 7382693-2 (Version None)
Quarter: 2011Q1

REPORT INFORMATION
  Report Type: 
  Country: None (occurrence: None)
  Receive Date: 20110330
  Receipt Date: 20110322
  Transmission Date: 20110831
  Serious: Yes (Other)
  Sender: FDA-Public Use
  Company Number: FR-AMGEN-FRASP2011010017

PATIENT
  Sex: Female

DRUGS (4)
  1. ENBREL [Suspect]
     Indication: RHEUMATOID ARTHRITIS
     Dosage: UNK
     Dates: start: 20080101
  2. LEVOTHYROXINE SODIUM [Concomitant]
  3. ULTRACET [Concomitant]
  4. HUMIRA [Suspect]
     Indication: RHEUMATOID ARTHRITIS
     Dosage: 40MG/ 0.8 ML
     Route: 058
     Dates: start: 20080101

REACTIONS (3)
  - NAIL DISCOLOURATION [None]
  - NEUTROPENIA [None]
  - DRUG HYPERSENSITIVITY [None]
